FAERS Safety Report 6424440-4 (Version None)
Quarter: 2009Q4

REPORT INFORMATION
  Report Type: 
  Country: None (occurrence: None)
  Receive Date: 20091029
  Receipt Date: 20091020
  Transmission Date: 20100525
  Serious: Yes (Life-Threatening)
  Sender: FDA-Public Use
  Company Number: FABR-1001041

PATIENT
  Age: 28 Year
  Sex: Male
  Weight: 65 kg

DRUGS (1)
  1. FABRAZYME [Suspect]
     Indication: FABRY'S DISEASE
     Dosage: 1 MG/KG, Q2W, INTRAVENOUS
     Route: 042
     Dates: start: 20090709, end: 20090903

REACTIONS (9)
  - ANAPHYLACTIC SHOCK [None]
  - ASTHMA [None]
  - ERYTHEMA [None]
  - FACE OEDEMA [None]
  - HYPOTENSION [None]
  - PULSE PRESSURE DECREASED [None]
  - RASH [None]
  - SINUS TACHYCARDIA [None]
  - TONGUE OEDEMA [None]
